FAERS Safety Report 4735443-X (Version None)
Quarter: 2005Q3

REPORT INFORMATION
  Report Type: 
  Country: None (occurrence: None)
  Receive Date: 20050805
  Receipt Date: 20050725
  Transmission Date: 20060218
  Serious: Yes (Other)
  Sender: FDA-Public Use
  Company Number: JP-JNJFOC-20050606939

PATIENT
  Sex: Male

DRUGS (37)
  1. REMICADE [Suspect]
     Route: 042
  2. REMICADE [Suspect]
     Route: 042
  3. REMICADE [Suspect]
     Route: 042
  4. REMICADE [Suspect]
     Indication: RHEUMATOID ARTHRITIS
     Route: 042
  5. METHOTREXATE [Suspect]
  6. METHOTREXATE [Suspect]
  7. METHOTREXATE [Suspect]
  8. METHOTREXATE [Suspect]
  9. METHOTREXATE [Suspect]
     Indication: RHEUMATOID ARTHRITIS
  10. PREDONINE [Suspect]
  11. PREDONINE [Suspect]
  12. PREDONINE [Suspect]
     Indication: RHEUMATOID ARTHRITIS
  13. ISCOTIN [Concomitant]
     Indication: TUBERCULOSIS PROPHYLAXIS
  14. BACTRAMIN [Concomitant]
  15. BACTRAMIN [Concomitant]
  16. KAMAG G [Concomitant]
     Indication: CONSTIPATION
  17. GASTER D [Concomitant]
  18. MUCOSTA [Concomitant]
  19. RHEUMATREX [Concomitant]
  20. RHEUMATREX [Concomitant]
     Indication: RHEUMATOID ARTHRITIS
  21. INFREE [Concomitant]
     Indication: RHEUMATOID ARTHRITIS
  22. VOLTAREN [Concomitant]
     Indication: RHEUMATOID ARTHRITIS
  23. GRIMAC [Concomitant]
  24. GRIMAC [Concomitant]
  25. EURODIN [Concomitant]
     Indication: INSOMNIA
  26. DEPAS [Concomitant]
     Indication: INSOMNIA
  27. RHYTHMY [Concomitant]
     Indication: INSOMNIA
  28. PL [Concomitant]
  29. HALCION [Concomitant]
     Indication: INSOMNIA
  30. DIFLUCAN [Concomitant]
  31. ADRENAL HORMONE PREPARATIONS [Concomitant]
     Indication: RHEUMATOID ARTHRITIS
  32. ALOSENN [Concomitant]
  33. ALOSENN [Concomitant]
  34. ALOSENN [Concomitant]
  35. ALOSENN [Concomitant]
  36. ALOSENN [Concomitant]
     Indication: CONSTIPATION
  37. PYRIDOXAL [Concomitant]

REACTIONS (1)
  - PNEUMOCYSTIS JIROVECI PNEUMONIA [None]
